FAERS Safety Report 16852649 (Version 1)
Quarter: 2019Q3

REPORT INFORMATION
  Report Type: Report from Study
  Country: US (occurrence: US)
  Receive Date: 20190925
  Receipt Date: 20190925
  Transmission Date: 20191005
  Serious: Yes (Hospitalization)
  Sender: FDA-Public Use
  Company Number: US-ASTELLAS-2019US037023

PATIENT
  Age: 67 Year
  Sex: Male

DRUGS (1)
  1. ISAVUCONAZOLE [Suspect]
     Active Substance: ISAVUCONAZOLE
     Indication: ASPERGILLUS INFECTION
     Route: 048
     Dates: start: 201909

REACTIONS (6)
  - Blood potassium decreased [Recovering/Resolving]
  - Hyponatraemia [Unknown]
  - Oxygen saturation decreased [Recovering/Resolving]
  - Blood osmolarity decreased [Unknown]
  - Dyspnoea [Recovering/Resolving]
  - Eye disorder [Unknown]

NARRATIVE: CASE EVENT DATE: 20190918
